FAERS Safety Report 5602782-X (Version None)
Quarter: 2008Q1

REPORT INFORMATION
  Report Type: 
  Country: None (occurrence: None)
  Receive Date: 20080125
  Receipt Date: 20080117
  Transmission Date: 20080703
  Serious: Yes (Hospitalization, Other)
  Sender: FDA-Public Use
  Company Number: AU-SP-2007-04141

PATIENT
  Age: 70 Year
  Sex: Male

DRUGS (4)
  1. IMMUCYST [Suspect]
     Indication: TRANSITIONAL CELL CARCINOMA
     Route: 043
     Dates: start: 20060424
  2. EPROSARTAN [Concomitant]
     Route: 048
     Dates: end: 20060426
  3. AROPAX (PAROXETINE HYDROCLORIDE) [Concomitant]
     Route: 048
     Dates: end: 20060426
  4. LIPITOR [Concomitant]
     Route: 048
     Dates: end: 20060426

REACTIONS (6)
  - ACUTE RESPIRATORY DISTRESS SYNDROME [None]
  - DISSEMINATED INTRAVASCULAR COAGULATION [None]
  - HYPERSENSITIVITY [None]
  - LIVER FUNCTION TEST ABNORMAL [None]
  - RENAL FAILURE [None]
  - SEPSIS SYNDROME [None]
